FAERS Safety Report 25657999 (Version 1)
Quarter: 2025Q3

REPORT INFORMATION
  Report Type: Report from Study
  Country: US (occurrence: US)
  Receive Date: 20250808
  Receipt Date: 20250808
  Transmission Date: 20251021
  Serious: Yes (Other)
  Sender: ALEXION PHARMACEUTICALS
  Company Number: US-AstraZeneca-CH-00711420A

PATIENT
  Sex: Male

DRUGS (1)
  1. LYNPARZA [Suspect]
     Active Substance: OLAPARIB
     Indication: Prostate cancer
     Dates: start: 20240622

REACTIONS (6)
  - Bone marrow disorder [Not Recovered/Not Resolved]
  - Wound treatment [Not Recovered/Not Resolved]
  - Lymphoedema [Not Recovered/Not Resolved]
  - Atrial fibrillation [Not Recovered/Not Resolved]
  - Loss of personal independence in daily activities [Unknown]
  - Incontinence [Not Recovered/Not Resolved]
